FAERS Safety Report 10412825 (Version 2)
Quarter: 2014Q3

REPORT INFORMATION
  Report Type: Spontaneous
  Country: US (occurrence: US)
  Receive Date: 20140827
  Receipt Date: 20140903
  Transmission Date: 20150326
  Serious: No
  Sender: FDA-Public Use
  Company Number: US-PFIZER INC-2014233975

PATIENT

DRUGS (7)
  1. SUMATRIPTAN SUCCINATE. [Suspect]
     Active Substance: SUMATRIPTAN SUCCINATE
     Indication: TENSION HEADACHE
  2. ACETAMINOPHEN. [Suspect]
     Active Substance: ACETAMINOPHEN
     Indication: MIGRAINE
  3. ACETAMINOPHEN. [Suspect]
     Active Substance: ACETAMINOPHEN
     Indication: TENSION HEADACHE
     Dosage: UNK
     Route: 064
  4. IBUPROFEN. [Suspect]
     Active Substance: IBUPROFEN
     Indication: TENSION HEADACHE
     Dosage: UNK
     Route: 064
  5. LIDOCAINE HCL [Suspect]
     Active Substance: LIDOCAINE HYDROCHLORIDE
     Dosage: EVERY THREE MINUTES, 4% LIDOCAINE 0.1 ML
     Route: 064
  6. SUMATRIPTAN SUCCINATE. [Suspect]
     Active Substance: SUMATRIPTAN SUCCINATE
     Indication: MIGRAINE
     Route: 064
  7. IBUPROFEN. [Suspect]
     Active Substance: IBUPROFEN
     Indication: MIGRAINE

REACTIONS (1)
  - Maternal exposure during pregnancy [Unknown]
